FAERS Safety Report 19813167 (Version 1)
Quarter: 2021Q3

REPORT INFORMATION
  Report Type: Spontaneous
  Country: US (occurrence: US)
  Receive Date: 20210909
  Receipt Date: 20210909
  Transmission Date: 20211014
  Serious: Yes (Death, Hospitalization)
  Sender: FDA-Public Use
  Company Number: None

PATIENT
  Age: 26 Year
  Sex: Male
  Weight: 78.75 kg

DRUGS (1)
  1. OLANZAPINE TABLETS, USP 20MG [Suspect]
     Active Substance: OLANZAPINE
     Indication: SCHIZOAFFECTIVE DISORDER
     Dosage: ?          QUANTITY:30 TABLET(S);?
     Route: 048
     Dates: start: 20210609, end: 20210712

REACTIONS (8)
  - Pyrexia [None]
  - Craniocerebral injury [None]
  - Neuroleptic malignant syndrome [None]
  - Coma [None]
  - Heart rate increased [None]
  - Anoxia [None]
  - Cardiac failure [None]
  - Blood pressure increased [None]

NARRATIVE: CASE EVENT DATE: 20210713
